FAERS Safety Report 15383916 (Version 1)
Quarter: 2018Q3

REPORT INFORMATION
  Report Type: Spontaneous
  Country: IT (occurrence: IT)
  Receive Date: 20180914
  Receipt Date: 20180914
  Transmission Date: 20181010
  Serious: Yes (Other)
  Sender: FDA-Public Use
  Company Number: IT-MYLANLABS-2018M1066519

PATIENT
  Sex: Female

DRUGS (2)
  1. UGUROL [Suspect]
     Active Substance: TRANEXAMIC ACID
     Indication: GASTRIC HAEMORRHAGE
     Dosage: 500 MG, TID
  2. NADOLOL. [Interacting]
     Active Substance: NADOLOL
     Indication: PRODUCT USED FOR UNKNOWN INDICATION
     Dosage: 20 MG, UNK

REACTIONS (4)
  - Bradycardia [Recovered/Resolved]
  - Drug interaction [Recovered/Resolved]
  - Hypotension [Recovered/Resolved]
  - Chromaturia [Unknown]
